FAERS Safety Report 10286135 (Version 1)
Quarter: 2014Q3

REPORT INFORMATION
  Report Type: Spontaneous
  Country: FR (occurrence: None)
  Receive Date: 20140703
  Receipt Date: 20140703
  Transmission Date: 20150326
  Serious: Yes (Hospitalization)
  Sender: FDA-Public Use
  Company Number: 2413784

PATIENT
  Age: 50 Year
  Sex: Female

DRUGS (5)
  1. DEROXAT [Concomitant]
     Active Substance: PAROXETINE HYDROCHLORIDE
  2. LYSANXIA [Concomitant]
     Active Substance: PRAZEPAM
  3. PAMIDRONIC ACID [Suspect]
     Active Substance: PAMIDRONIC ACID
     Indication: ARTHRALGIA
     Dosage: 60MG, 1 DAY, INTRAVENOUS NOT OTHERWISE SPECIFIED
     Route: 042
     Dates: start: 20140129, end: 20140130
  4. CERAZETTE [Concomitant]
     Active Substance: DESOGESTREL
  5. KENZEN [Concomitant]
     Active Substance: CANDESARTAN

REACTIONS (1)
  - Deep vein thrombosis [None]

NARRATIVE: CASE EVENT DATE: 20140203
